FAERS Safety Report 7402942-1 (Version None)
Quarter: 2011Q1

REPORT INFORMATION
  Report Type: 
  Country: None (occurrence: None)
  Receive Date: 20110331
  Receipt Date: 20110323
  Transmission Date: 20110831
  Serious: Yes (Other)
  Sender: FDA-Public Use
  Company Number: JPI-P-014316

PATIENT
  Age: 31 Year
  Sex: Female

DRUGS (1)
  1. XYREM [Suspect]
     Indication: NARCOLEPSY
     Dosage: (2 IN 1 D),ORAL ; 2.25 GM FIRST DOSE/4.5 GM SECOND DOSE),ORAL
     Route: 048
     Dates: start: 20070901

REACTIONS (8)
  - DRUG EXPOSURE DURING PREGNANCY [None]
  - VEIN DISORDER [None]
  - THORACIC OUTLET SYNDROME [None]
  - ABORTION SPONTANEOUS [None]
  - HEAT RASH [None]
  - URTICARIA [None]
  - GENERAL PHYSICAL HEALTH DETERIORATION [None]
  - MYOCLONUS [None]
